FAERS Safety Report 18444221 (Version 1)
Quarter: 2020Q4

REPORT INFORMATION
  Report Type: Spontaneous
  Country: US (occurrence: US)
  Receive Date: 20201029
  Receipt Date: 20201029
  Transmission Date: 20210114
  Serious: Yes (Other)
  Sender: FDA-Public Use
  Company Number: None

PATIENT
  Sex: Female

DRUGS (2)
  1. GONAL-F RFF REDI-JECT [Suspect]
     Active Substance: FOLLITROPIN
     Indication: INFERTILITY FEMALE
     Dosage: ?          OTHER DOSE:150-450 UNITS;?
     Route: 058
     Dates: start: 20201022
  2. LEUPROLIDE ACET 2 WEEK 10MG/0.2ML [Suspect]
     Active Substance: LEUPROLIDE ACETATE
     Indication: INFERTILITY FEMALE
     Dosage: ?          OTHER DOSE:40 UNITS;?
     Route: 058
     Dates: start: 20200902

REACTIONS (5)
  - Muscle spasms [None]
  - Musculoskeletal chest pain [None]
  - Pain [None]
  - Headache [None]
  - Muscular weakness [None]
